FAERS Safety Report 20956229 (Version 1)
Quarter: 2022Q2

REPORT INFORMATION
  Report Type: Spontaneous
  Country: US (occurrence: US)
  Receive Date: 20220614
  Receipt Date: 20220614
  Transmission Date: 20220720
  Serious: Yes (Life-Threatening, Hospitalization)
  Sender: FDA-Public Use
  Company Number: US-MYLANLABS-2022M1044848

PATIENT
  Age: 5 Year
  Sex: Female

DRUGS (20)
  1. VANCOMYCIN [Suspect]
     Active Substance: VANCOMYCIN
     Indication: Meningitis bacterial
     Dosage: 15 MILLIGRAM/KILOGRAM, Q6H
  2. NOREPINEPHRINE [Suspect]
     Active Substance: NOREPINEPHRINE
     Indication: Hypotension
     Dosage: 0.2 MICROGRAM/KILOGRAM,PER MINUTE
  3. NOREPINEPHRINE [Suspect]
     Active Substance: NOREPINEPHRINE
     Dosage: 0.5 MICROGRAM/KILOGRAM,PER MINUTE
  4. EPINEPHRINE [Suspect]
     Active Substance: EPINEPHRINE
     Indication: Hypotension
     Dosage: 0.2 MICROGRAM/KILOGRAM,PER MINUTE
  5. EPINEPHRINE [Suspect]
     Active Substance: EPINEPHRINE
     Dosage: PER MINUTE
  6. DEXAMETHASONE [Suspect]
     Active Substance: DEXAMETHASONE
     Indication: Meningitis bacterial
     Dosage: 0.6 MILLIGRAM/KILOGRAM, QD
  7. AMPICILLIN [Suspect]
     Active Substance: AMPICILLIN
     Indication: Meningitis bacterial
     Dosage: 200 MILLIGRAM/KILOGRAM, QD
  8. DOPAMINE [Suspect]
     Active Substance: DOPAMINE HYDROCHLORIDE
     Indication: Hypotension
     Dosage: 10 MICROGRAM/KILOGRAM,PER MINUTE
  9. DOPAMINE [Suspect]
     Active Substance: DOPAMINE HYDROCHLORIDE
     Dosage: 15 MICROGRAM/KILOGRAM,PER MINUTE
  10. CEFTRIAXONE [Suspect]
     Active Substance: CEFTRIAXONE
     Indication: Meningitis bacterial
     Dosage: 100 MILLIGRAM/KILOGRAM, QD
  11. AMIKACIN [Suspect]
     Active Substance: AMIKACIN
     Indication: Meningitis bacterial
     Dosage: 15 MILLIGRAM/KILOGRAM, QD
  12. VASOPRESSIN [Suspect]
     Active Substance: VASOPRESSIN
     Indication: Hypotension
     Dosage: 0.05 INTERNATIONAL UNIT/KILOGRAM, QH
  13. VASOPRESSIN [Suspect]
     Active Substance: VASOPRESSIN
     Dosage: 0.25 INTERNATIONAL UNIT/KILOGRAM, QH
  14. LEVOSIMENDAN [Concomitant]
     Active Substance: LEVOSIMENDAN
     Indication: Hypotension
     Dosage: 0.2 MICROGRAM/KILOGRAM,PER MIN
  15. DEXTROSE [Concomitant]
     Active Substance: DEXTROSE
     Indication: Product used for unknown indication
     Dosage: UNK,GIVEN AS BOLUS
  16. METHYLENE BLUE [Concomitant]
     Active Substance: METHYLENE BLUE
     Indication: Septic shock
     Dosage: 1 MILLIGRAM/KILOGRAM,GIVEN AS BOLUS
  17. PHENYTOIN [Concomitant]
     Active Substance: PHENYTOIN
     Indication: Seizure prophylaxis
     Dosage: UNK
  18. ENOXAPARIN [Concomitant]
     Active Substance: ENOXAPARIN
     Indication: Thrombosis prophylaxis
     Dosage: 1 MILLIGRAM/KILOGRAM, QD
  19. CALCIUM GLUCONATE [Concomitant]
     Active Substance: CALCIUM GLUCONATE
     Indication: Product used for unknown indication
     Dosage: UNK
  20. HYDROCORTISONE [Concomitant]
     Active Substance: HYDROCORTISONE
     Indication: Product used for unknown indication

REACTIONS (1)
  - Drug ineffective [Unknown]
